FAERS Safety Report 16342450 (Version 1)
Quarter: 2019Q2

REPORT INFORMATION
  Report Type: Spontaneous
  Country: US (occurrence: US)
  Receive Date: 20190417
  Receipt Date: 20190417
  Transmission Date: 20190711
  Serious: No
  Sender: FDA-Public Use
  Company Number: None

PATIENT
  Age: 76 Year
  Sex: Male
  Weight: 101.15 kg

DRUGS (1)
  1. TAFINLAR [Suspect]
     Active Substance: DABRAFENIB MESYLATE
     Indication: SKIN CANCER
     Dosage: ?          OTHER DOSE:TAKE 2 CAPSULES BY MOUTH EVERY 12 HOURS AS DIRECTED?
     Route: 048

REACTIONS (2)
  - Product communication issue [None]
  - Incorrect dose administered [None]
